FAERS Safety Report 9142320 (Version 6)
Quarter: 2013Q3

REPORT INFORMATION
  Report Type: Report from Study
  Country: AR (occurrence: AR)
  Receive Date: 20130306
  Receipt Date: 20130807
  Transmission Date: 20140515
  Serious: Yes (Other)
  Sender: FDA-Public Use
  Company Number: AR-AMGEN-ARGCT2013015301

PATIENT
  Age: 55 Year
  Sex: Male
  Weight: 83.1 kg

DRUGS (14)
  1. ETANERCEPT [Suspect]
     Indication: RHEUMATOID ARTHRITIS
     Dosage: 50 MG, WEEKLY (DATE OF MOST RECENT DOSE PRIOR TO SAE: 04/FEB/2013)
     Route: 058
     Dates: start: 20120521
  2. LEFLUNOMIDE [Concomitant]
     Indication: RHEUMATOID ARTHRITIS
     Dosage: 20 MG, 1X/DAY
     Route: 048
     Dates: start: 201201
  3. PREDNISONE [Concomitant]
     Indication: RHEUMATOID ARTHRITIS
     Dosage: 1 DF, 1X/DAY
     Route: 048
     Dates: start: 201111, end: 20130107
  4. PREDNISONE [Concomitant]
     Indication: ARTHRALGIA
     Dosage: 10 MG, 1X/DAY
     Route: 048
     Dates: start: 20130107, end: 20130128
  5. PREDNISONE [Concomitant]
     Indication: ARTHRALGIA
  6. ETORICOXIB [Concomitant]
     Indication: RHEUMATOID ARTHRITIS
     Dosage: 60 MG, 1X/DAY
     Route: 048
     Dates: start: 201111, end: 20130128
  7. TELMISARTAN [Concomitant]
     Indication: HYPERTENSION
     Dosage: 50 MG, 1X/DAY
     Route: 048
     Dates: start: 20120524
  8. HYDROCHLOROTHIAZIDE [Concomitant]
     Indication: HYPERTENSION
     Dosage: 25 MG, 1X/DAY
     Route: 048
     Dates: start: 20110524
  9. TRAMADOL [Concomitant]
     Indication: ARTHRALGIA
     Dosage: 50 MG, 1X/DAY, AS NEEDED
     Route: 048
     Dates: start: 20130107
  10. TRAMADOL [Concomitant]
     Indication: ARTHRALGIA
  11. ALPRAZOLAM [Concomitant]
     Dosage: 0.5 MG, 2X/DAY
     Route: 048
     Dates: start: 20130118
  12. AMLODIPINE [Concomitant]
     Dosage: 10 MG, 1X/DAY
     Route: 048
     Dates: start: 20130118
  13. CLAVULANIC ACID [Concomitant]
     Dosage: UNK
  14. AMOXICILLIN [Concomitant]
     Dosage: UNK

REACTIONS (1)
  - Bursitis [Recovered/Resolved]
